FAERS Safety Report 4786890-1 (Version None)
Quarter: 2005Q4

REPORT INFORMATION
  Report Type: 
  Country: None (occurrence: None)
  Receive Date: 20051004
  Receipt Date: 20050909
  Transmission Date: 20060501
  Serious: Yes (Hospitalization, Other)
  Sender: FDA-Public Use
  Company Number: 2005AP04818

PATIENT
  Age: 49 Year
  Sex: Female

DRUGS (9)
  1. CRESTOR [Suspect]
     Route: 048
     Dates: start: 20041015, end: 20050406
  2. LIPITOR [Suspect]
     Dates: start: 20040810, end: 20041014
  3. LIPITOR [Suspect]
     Dates: start: 20050407, end: 20050710
  4. ZOCOR [Concomitant]
     Dates: start: 20040405, end: 20040809
  5. NOVOLIN [Concomitant]
     Dates: start: 20041015, end: 20050131
  6. ACERTIL [Concomitant]
     Dates: start: 20041015
  7. AMODIPINE [Concomitant]
     Dates: start: 20041015
  8. DIOVAN HCT [Concomitant]
     Dosage: 80/12.5MG
     Dates: start: 20050202
  9. PERINDOPRIL [Concomitant]
     Dates: start: 20041015, end: 20050202

REACTIONS (6)
  - DIABETIC NEPHROPATHY [None]
  - HAEMODIALYSIS [None]
  - INTERCAPILLARY GLOMERULOSCLEROSIS [None]
  - RASH [None]
  - RENAL FAILURE ACUTE [None]
  - URTICARIA [None]
